FAERS Safety Report 5919192-8 (Version None)
Quarter: 2008Q4

REPORT INFORMATION
  Report Type: 
  Country: None (occurrence: None)
  Receive Date: 20081015
  Receipt Date: 20081003
  Transmission Date: 20090506
  Serious: Yes (Hospitalization)
  Sender: FDA-Public Use
  Company Number: CN-ROCHE-589469

PATIENT
  Age: 56 Year
  Sex: Male

DRUGS (1)
  1. XELODA [Suspect]
     Indication: RECTAL CANCER
     Route: 048
     Dates: start: 20080801, end: 20080825

REACTIONS (8)
  - ASTHENIA [None]
  - DYSARTHRIA [None]
  - HYPERHIDROSIS [None]
  - HYPOAESTHESIA ORAL [None]
  - INTESTINAL OBSTRUCTION [None]
  - NAUSEA [None]
  - PALATAL DISORDER [None]
  - SPEECH DISORDER [None]
